FAERS Safety Report 24169167 (Version 1)
Quarter: 2024Q3

REPORT INFORMATION
  Report Type: Spontaneous
  Country: US (occurrence: None)
  Receive Date: 20240802
  Receipt Date: 20240802
  Transmission Date: 20241016
  Serious: No
  Sender: Public
  Company Number: None

PATIENT

DRUGS (6)
  1. CLOPIDOGREL BISULFATE [Suspect]
     Active Substance: CLOPIDOGREL BISULFATE
  2. FUROSEMIDE [Suspect]
     Active Substance: FUROSEMIDE
  3. PLAVIX [Suspect]
     Active Substance: CLOPIDOGREL BISULFATE
  4. FUROSEMIDE [Suspect]
     Active Substance: FUROSEMIDE
  5. PLAVIX [Suspect]
     Active Substance: CLOPIDOGREL BISULFATE
  6. FUROSEMIDE [Suspect]
     Active Substance: FUROSEMIDE

REACTIONS (1)
  - Product dispensing error [None]
